FAERS Safety Report 17294718 (Version 1)
Quarter: 2020Q1

REPORT INFORMATION
  Report Type: Spontaneous
  Country: US (occurrence: US)
  Receive Date: 20200121
  Receipt Date: 20200121
  Transmission Date: 20200409
  Serious: No
  Sender: FDA-Public Use
  Company Number: US-PFIZER INC-2020022999

PATIENT
  Age: 64 Year
  Sex: Female

DRUGS (1)
  1. PREMARIN [Suspect]
     Active Substance: ESTROGENS, CONJUGATED
     Dosage: 1 G, 2X/DAY
     Route: 067

REACTIONS (4)
  - Off label use [Unknown]
  - Intentional product misuse [Unknown]
  - Low density lipoprotein increased [Unknown]
  - Product use issue [Unknown]
